FAERS Safety Report 15399864 (Version 1)
Quarter: 2018Q3

REPORT INFORMATION
  Report Type: Spontaneous
  Country: CA (occurrence: CA)
  Receive Date: 20180919
  Receipt Date: 20180919
  Transmission Date: 20181010
  Serious: Yes (Hospitalization, Other)
  Sender: FDA-Public Use
  Company Number: PHHY2018CA099232

PATIENT
  Age: 30 Year
  Sex: Male

DRUGS (10)
  1. METONIA [Suspect]
     Active Substance: METOCLOPRAMIDE
     Indication: PRODUCT USED FOR UNKNOWN INDICATION
     Route: 065
  2. NIVOLUMAB [Suspect]
     Active Substance: NIVOLUMAB
     Dosage: UNK UNK, Q3W
     Route: 065
     Dates: start: 20180814
  3. PREDNISONE. [Concomitant]
     Active Substance: PREDNISONE
     Indication: PRODUCT USED FOR UNKNOWN INDICATION
     Dosage: UNK
     Route: 065
     Dates: start: 20180815
  4. ONDANSETRON HYDROCHLORIDE. [Suspect]
     Active Substance: ONDANSETRON HYDROCHLORIDE
     Indication: PRODUCT USED FOR UNKNOWN INDICATION
     Dosage: UNK
     Route: 065
  5. IPILIMUMAB [Suspect]
     Active Substance: IPILIMUMAB
     Dosage: UNK UNK, Q3W
     Route: 065
     Dates: start: 20180814
  6. NIVOLUMAB [Suspect]
     Active Substance: NIVOLUMAB
     Indication: PRODUCT USED FOR UNKNOWN INDICATION
     Dosage: UNK UNK, Q3W
     Route: 065
     Dates: start: 20180725
  7. PROCHLORPERAZINE. [Suspect]
     Active Substance: PROCHLORPERAZINE
     Indication: PRODUCT USED FOR UNKNOWN INDICATION
     Route: 065
  8. IPILIMUMAB [Suspect]
     Active Substance: IPILIMUMAB
     Indication: PRODUCT USED FOR UNKNOWN INDICATION
     Dosage: UNK UNK, Q3W
     Route: 065
     Dates: start: 20180725
  9. RANITIDINE. [Concomitant]
     Active Substance: RANITIDINE
     Indication: PRODUCT USED FOR UNKNOWN INDICATION
     Dosage: UNK
     Route: 065
  10. PANTOPRAZOLE [Concomitant]
     Active Substance: PANTOPRAZOLE
     Indication: PRODUCT USED FOR UNKNOWN INDICATION
     Dosage: UNK
     Route: 065

REACTIONS (17)
  - Oesophageal ulcer [Unknown]
  - Weight decreased [Unknown]
  - Pharyngitis [Unknown]
  - Nausea [Not Recovered/Not Resolved]
  - Autoimmune colitis [Unknown]
  - Ileal ulcer [Unknown]
  - Malaise [Unknown]
  - Abdominal tenderness [Unknown]
  - Haemorrhoids [Unknown]
  - Oropharyngeal pain [Unknown]
  - Hepatic lesion [Unknown]
  - Vomiting [Unknown]
  - Eating disorder [Unknown]
  - Diarrhoea [Unknown]
  - Decreased appetite [Unknown]
  - Rash papular [Unknown]
  - Pyrexia [Unknown]

NARRATIVE: CASE EVENT DATE: 20180529
